FAERS Safety Report 8514644-9 (Version None)
Quarter: 2012Q3

REPORT INFORMATION
  Report Type: 
  Country: None (occurrence: None)
  Receive Date: 20120717
  Receipt Date: 20120625
  Transmission Date: 20120928
  Serious: No
  Sender: FDA-Public Use
  Company Number: US-ASTRAZENECA-2012SE43049

PATIENT
  Age: 74 Year
  Sex: Male
  Weight: 90.7 kg

DRUGS (6)
  1. CRESTOR [Suspect]
     Indication: BLOOD CHOLESTEROL
     Route: 048
     Dates: start: 20120601
  2. CRESTOR [Suspect]
     Route: 048
  3. HYPERTENSION MEDICATION [Concomitant]
     Indication: HYPERTENSION
  4. ANGINA MEDICATION [Concomitant]
     Indication: ANGINA PECTORIS
  5. PLAVIX [Concomitant]
     Indication: ATRIOVENTRICULAR BLOCK
  6. CRESTOR [Suspect]
     Route: 048

REACTIONS (5)
  - MUSCULOSKELETAL PAIN [None]
  - INTENTIONAL DRUG MISUSE [None]
  - BLOOD TRIGLYCERIDES INCREASED [None]
  - MYALGIA [None]
  - NECK PAIN [None]
